FAERS Safety Report 12108646 (Version 1)
Quarter: 2016Q1

REPORT INFORMATION
  Report Type: Spontaneous
  Country: US (occurrence: None)
  Receive Date: 20160222
  Receipt Date: 20160222
  Transmission Date: 20160526
  Serious: Yes (Death)
  Sender: FDA-Public Use
  Company Number: None

PATIENT
  Age: 53 Year
  Sex: Female

DRUGS (13)
  1. MORPHINE [Suspect]
     Active Substance: MORPHINE
     Indication: PAIN
     Dosage: 0.5-2 MG/HR CONTINUOUS IV
     Route: 042
     Dates: start: 20160115, end: 20160115
  2. ACETAMINOPHEN. [Concomitant]
     Active Substance: ACETAMINOPHEN
  3. DEXAMETHASONE. [Concomitant]
     Active Substance: DEXAMETHASONE
  4. SENNA [Concomitant]
     Active Substance: SENNA LEAF\SENNOSIDES\SENNOSIDES A AND B
  5. LEVETIRACETAM. [Concomitant]
     Active Substance: LEVETIRACETAM
  6. DOCUSATE [Concomitant]
     Active Substance: DOCUSATE
  7. FENTANYL. [Concomitant]
     Active Substance: FENTANYL
  8. CASPOFUNGIN [Concomitant]
     Active Substance: CASPOFUNGIN
  9. CITALOPRAM [Concomitant]
     Active Substance: CITALOPRAM HYDROBROMIDE
  10. INSULIN REGULAR [Concomitant]
     Active Substance: INSULIN NOS
  11. OXYCODONE [Concomitant]
     Active Substance: OXYCODONE
  12. METRONIDAZOLE. [Concomitant]
     Active Substance: METRONIDAZOLE
  13. VANCOMYCIN [Concomitant]
     Active Substance: VANCOMYCIN

REACTIONS (4)
  - Encephalopathy [None]
  - Mouth breathing [None]
  - Bradycardia [None]
  - Oxygen saturation decreased [None]

NARRATIVE: CASE EVENT DATE: 20160117
